FAERS Safety Report 9275489 (Version 6)
Quarter: 2014Q1

REPORT INFORMATION
  Report Type: Report from Study
  Country: RU (occurrence: RU)
  Receive Date: 20130507
  Receipt Date: 20140319
  Transmission Date: 20141002
  Serious: Yes (Life-Threatening)
  Sender: FDA-Public Use
  Company Number: RU-ROCHE-1221863

PATIENT
  Age: 42 Year
  Sex: Male
  Weight: 63.5 kg

DRUGS (2)
  1. VEMURAFENIB [Suspect]
     Indication: MALIGNANT MELANOMA
     Route: 048
     Dates: start: 20130328
  2. VEMURAFENIB [Suspect]
     Dosage: REDUCED DOSE
     Route: 048

REACTIONS (5)
  - Febrile neutropenia [Recovered/Resolved]
  - Leukopenia [Recovered/Resolved]
  - Pyrexia [Recovered/Resolved]
  - Tonsillitis [Recovered/Resolved]
  - Neutropenia [Recovered/Resolved]
